FAERS Safety Report 6455276-6 (Version None)
Quarter: 2009Q4

REPORT INFORMATION
  Report Type: 
  Country: None (occurrence: None)
  Receive Date: 20091119
  Receipt Date: 20091106
  Transmission Date: 20100525
  Serious: Yes (Hospitalization)
  Sender: FDA-Public Use
  Company Number: JP-001137

PATIENT
  Sex: Male
  Weight: 60.2 kg

DRUGS (13)
  1. DEGARELIX (DEGARELIX) (240 MG, 80 MG) [Suspect]
     Indication: PROSTATE CANCER
     Dosage: 240 MG, SUBCUTANEOUS, 80 MG SUBCUTANEOUS
     Route: 058
     Dates: start: 20080930, end: 20080930
  2. DEGARELIX (DEGARELIX) (240 MG, 80 MG) [Suspect]
     Indication: PROSTATE CANCER
     Dosage: 240 MG, SUBCUTANEOUS, 80 MG SUBCUTANEOUS
     Route: 058
     Dates: start: 20081001, end: 20090908
  3. CALBLOCK [Concomitant]
  4. LOSARTAN POTASSIUM [Concomitant]
  5. MOHRUS (MOHRUS) [Concomitant]
  6. CATALIN K (CATALIN K) [Concomitant]
  7. NOVORAPID [Concomitant]
  8. LANTUS [Concomitant]
  9. CRAVIT [Concomitant]
  10. ROFECOXIB [Concomitant]
  11. FLUMARIN /00963302/ [Concomitant]
  12. LIDOCAINE [Concomitant]
  13. TOXOIDE TETANICO [Concomitant]

REACTIONS (3)
  - CONDITION AGGRAVATED [None]
  - DIABETES MELLITUS [None]
  - GLYCOSYLATED HAEMOGLOBIN INCREASED [None]
